FAERS Safety Report 8998620 (Version 1)
Quarter: 2013Q1

REPORT INFORMATION
  Report Type: Spontaneous
  Country: US (occurrence: US)
  Receive Date: 20130103
  Receipt Date: 20130103
  Transmission Date: 20140127
  Serious: No
  Sender: FDA-Public Use
  Company Number: US-ASTRAZENECA-2012SE88648

PATIENT
  Age: 64 Year
  Sex: Female

DRUGS (4)
  1. CRESTOR [Suspect]
     Indication: BLOOD CHOLESTEROL INCREASED
     Route: 048
     Dates: start: 2007
  2. CRESTOR [Suspect]
     Indication: BLOOD CHOLESTEROL INCREASED
     Route: 048
     Dates: start: 201211
  3. CRESTOR [Suspect]
     Indication: BLOOD CHOLESTEROL INCREASED
     Route: 048
  4. OTHER MEDICATIONS [Concomitant]

REACTIONS (11)
  - Blood cholesterol abnormal [Unknown]
  - Epistaxis [Unknown]
  - Dyspnoea [Unknown]
  - Palpitations [Unknown]
  - Oedema [Unknown]
  - Chest pain [Unknown]
  - Food allergy [Unknown]
  - Blood cholesterol increased [Unknown]
  - Headache [Unknown]
  - Drug hypersensitivity [Unknown]
  - Intentional drug misuse [Unknown]
